FAERS Safety Report 24810131 (Version 1)
Quarter: 2025Q1

REPORT INFORMATION
  Report Type: Spontaneous
  Country: CN (occurrence: CN)
  Receive Date: 20250106
  Receipt Date: 20250106
  Transmission Date: 20250409
  Serious: Yes (Life-Threatening, Hospitalization, Other)
  Sender: ELI LILLY AND COMPANY
  Company Number: CN-ELI_LILLY_AND_COMPANY-CN202501000556

PATIENT
  Age: 68 Year
  Sex: Female
  Weight: 58 kg

DRUGS (6)
  1. GEMZAR [Suspect]
     Active Substance: GEMCITABINE HYDROCHLORIDE
     Indication: Uterine cancer
     Route: 041
     Dates: start: 20241212, end: 20241212
  2. SODIUM CHLORIDE [Suspect]
     Active Substance: SODIUM CHLORIDE
     Indication: Prophylaxis
     Route: 041
     Dates: start: 20241212, end: 20241212
  3. NEDAPLATIN [Suspect]
     Active Substance: NEDAPLATIN
     Indication: Uterine cancer
     Route: 041
     Dates: start: 20241212, end: 20241212
  4. BEVACIZUMAB [Suspect]
     Active Substance: BEVACIZUMAB
     Indication: Uterine cancer
     Route: 041
     Dates: start: 20241212, end: 20241212
  5. OTSUKA SODIUM CHLORIDE [Concomitant]
     Indication: Prophylaxis
     Route: 041
     Dates: start: 20241212, end: 20241212
  6. SODIUM CHLORIDE [Concomitant]
     Active Substance: SODIUM CHLORIDE
     Indication: Prophylaxis
     Route: 041
     Dates: start: 20241212, end: 20241212

REACTIONS (1)
  - Myelosuppression [Recovering/Resolving]

NARRATIVE: CASE EVENT DATE: 20241226
